FAERS Safety Report 8400580-5 (Version None)
Quarter: 2012Q2

REPORT INFORMATION
  Report Type: 
  Country: None (occurrence: None)
  Receive Date: 20120531
  Receipt Date: 20120524
  Transmission Date: 20120825
  Serious: Yes (Other)
  Sender: FDA-Public Use
  Company Number: CHPA2012DE011073

PATIENT
  Sex: Male

DRUGS (1)
  1. OTRIVIN [Suspect]
     Route: 045

REACTIONS (1)
  - DRUG DEPENDENCE [None]
